FAERS Safety Report 8169895-2 (Version None)
Quarter: 2012Q1

REPORT INFORMATION
  Report Type: 
  Country: None (occurrence: None)
  Receive Date: 20120222
  Receipt Date: 20120207
  Transmission Date: 20120608
  Serious: Yes (Death)
  Sender: FDA-Public Use
  Company Number: PNIS20120006

PATIENT
  Age: 53 Year
  Sex: Female

DRUGS (1)
  1. PREDNISOLONE [Suspect]
     Indication: EMPHYSEMA
     Dosage: 20 MG,

REACTIONS (5)
  - IMPAIRED HEALING [None]
  - STAPHYLOCOCCUS TEST POSITIVE [None]
  - POSTOPERATIVE WOUND INFECTION [None]
  - ENTEROCOCCUS TEST POSITIVE [None]
  - INFECTIOUS PERITONITIS [None]
